FAERS Safety Report 12482877 (Version 3)
Quarter: 2016Q4

REPORT INFORMATION
  Report Type: Spontaneous
  Country: JP (occurrence: JP)
  Receive Date: 20160620
  Receipt Date: 20161130
  Transmission Date: 20170207
  Serious: Yes (Death, Hospitalization, Other)
  Sender: FDA-Public Use
  Company Number: JP-GILEAD-2016-0217807AA

PATIENT
  Age: 58 Year
  Sex: Female
  Weight: 60.6 kg

DRUGS (2)
  1. HARVONI [Suspect]
     Active Substance: LEDIPASVIR\SOFOSBUVIR
     Indication: HEPATITIS C
     Dosage: 1 DF, UNK
     Route: 048
     Dates: start: 20160314, end: 201604
  2. NEXIUM [Concomitant]
     Active Substance: ESOMEPRAZOLE MAGNESIUM
     Indication: GASTROOESOPHAGEAL REFLUX DISEASE
     Dosage: 1 DF, UNK
     Route: 048
     Dates: start: 20160215, end: 201604

REACTIONS (4)
  - Ascites [Fatal]
  - Hepatic failure [Fatal]
  - Jaundice [Fatal]
  - Encephalopathy [Fatal]

NARRATIVE: CASE EVENT DATE: 20160407
